FAERS Safety Report 5777486-3 (Version None)
Quarter: 2008Q2

REPORT INFORMATION
  Report Type: 
  Country: None (occurrence: None)
  Receive Date: 20080616
  Receipt Date: 20080610
  Transmission Date: 20081010
  Serious: Yes (Hospitalization)
  Sender: FDA-Public Use
  Company Number: 2008SP008969

PATIENT
  Age: 48 Year
  Sex: Female
  Weight: 57.1532 kg

DRUGS (6)
  1. RIBAVIRIN [Suspect]
     Indication: HEPATITIS C
     Dosage: 400 MC;BID;PO
     Route: 048
     Dates: start: 20080229, end: 20080501
  2. RIBAVIRIN [Suspect]
     Indication: HEPATITIS C
     Dosage: 400 MC;BID;PO
     Route: 048
     Dates: start: 20080501
  3. PEG-INTRON [Suspect]
     Indication: HEPATITIS C
     Dosage: QW;SC
     Route: 058
     Dates: start: 20080229, end: 20080501
  4. PEG-INTRON [Suspect]
     Indication: HEPATITIS C
     Dosage: QW;SC
     Route: 058
     Dates: start: 20080501
  5. PHENERGAN HCL [Concomitant]
  6. NEURONTIN [Concomitant]

REACTIONS (28)
  - BACK PAIN [None]
  - BURNING SENSATION [None]
  - CONDITION AGGRAVATED [None]
  - DEHYDRATION [None]
  - DEPRESSION [None]
  - DISTURBANCE IN ATTENTION [None]
  - DRY MOUTH [None]
  - DYSPNOEA [None]
  - FALL [None]
  - FATIGUE [None]
  - HEADACHE [None]
  - IMMUNE SYSTEM DISORDER [None]
  - INFLUENZA LIKE ILLNESS [None]
  - INJECTION SITE ERYTHEMA [None]
  - INJECTION SITE REACTION [None]
  - INSOMNIA [None]
  - KIDNEY INFECTION [None]
  - LOSS OF CONSCIOUSNESS [None]
  - MEMORY IMPAIRMENT [None]
  - NASAL CONGESTION [None]
  - NAUSEA [None]
  - ORAL INTAKE REDUCED [None]
  - PANCYTOPENIA [None]
  - PHARYNGEAL ERYTHEMA [None]
  - RHABDOMYOLYSIS [None]
  - SPEECH DISORDER [None]
  - SYNCOPE [None]
  - THIRST [None]
